FAERS Safety Report 24414989 (Version 1)
Quarter: 2024Q4

REPORT INFORMATION
  Report Type: Spontaneous
  Country: US (occurrence: US)
  Receive Date: 20241009
  Receipt Date: 20241009
  Transmission Date: 20250114
  Serious: No
  Sender: AJANTA PHARMA
  Company Number: US-AJANTA-2024AJA00131

PATIENT
  Age: 86 Year
  Sex: Female
  Weight: 142 kg

DRUGS (3)
  1. DULOXETINE [Suspect]
     Active Substance: DULOXETINE
     Indication: Anxiety
     Route: 048
     Dates: start: 20240709, end: 20240709
  2. DULOXETINE [Suspect]
     Active Substance: DULOXETINE
     Indication: Hypertension
  3. METOPROLOL TARTRATE [Suspect]
     Active Substance: METOPROLOL TARTRATE
     Indication: Product used for unknown indication
     Dosage: IN THE MORNING AT 8:00 AND AT 2:00

REACTIONS (2)
  - Diarrhoea [Not Recovered/Not Resolved]
  - Product use in unapproved indication [Unknown]

NARRATIVE: CASE EVENT DATE: 20240709
